FAERS Safety Report 18067353 (Version 1)
Quarter: 2020Q3

REPORT INFORMATION
  Report Type: Report from Study
  Country: TH (occurrence: TH)
  Receive Date: 20200724
  Receipt Date: 20200724
  Transmission Date: 20201103
  Serious: Yes (Hospitalization, Other)
  Sender: FDA-Public Use
  Company Number: TH-ASTRAZENECA-2020SE75923

PATIENT
  Age: 67 Year
  Sex: Male

DRUGS (2)
  1. TAGRISSO [Suspect]
     Active Substance: OSIMERTINIB
     Indication: LUNG NEOPLASM MALIGNANT
     Route: 048
     Dates: start: 20190522, end: 202006
  2. TAGRISSO [Suspect]
     Active Substance: OSIMERTINIB
     Indication: LUNG NEOPLASM MALIGNANT
     Route: 048

REACTIONS (6)
  - Metastasis [Recovered/Resolved]
  - Hypophagia [Recovered/Resolved]
  - Fatigue [Recovering/Resolving]
  - Sleep disorder [Unknown]
  - Drug resistance [Recovered/Resolved]
  - Fracture [Recovering/Resolving]

NARRATIVE: CASE EVENT DATE: 2020
